FAERS Safety Report 9858310 (Version 2)
Quarter: 2014Q1

REPORT INFORMATION
  Report Type: Spontaneous
  Country: CA (occurrence: CA)
  Receive Date: 20140131
  Receipt Date: 20140131
  Transmission Date: 20141002
  Serious: Yes (Hospitalization, Other)
  Sender: FDA-Public Use
  Company Number: CA-BEH-2013038001

PATIENT
  Age: 16 Year
  Sex: Female
  Weight: 83 kg

DRUGS (7)
  1. PRIVIGEN [Suspect]
     Indication: IMMUNE THROMBOCYTOPENIC PURPURA
     Dosage: 1 G/KG
     Route: 042
     Dates: start: 20130124
  2. PRIVIGEN [Suspect]
     Dosage: 0.05 G/KG PER DOSE FOR 2 CONSECUTIVE DAYS
     Route: 042
  3. PRIVIGEN [Suspect]
     Dosage: 1 GM/KG
     Route: 042
     Dates: start: 20130207, end: 20130207
  4. PRIVIGEN [Suspect]
     Dosage: 1 GM/KG
     Route: 042
     Dates: start: 20130208, end: 20130208
  5. YAZ [Suspect]
     Route: 048
     Dates: end: 20130215
  6. PREDNISONE [Suspect]
     Dates: end: 20130214
  7. PREDNISONE [Concomitant]

REACTIONS (19)
  - Cerebral infarction [Unknown]
  - Grand mal convulsion [Recovered/Resolved]
  - Headache [Recovered/Resolved]
  - Nuchal rigidity [Recovered/Resolved]
  - Vomiting [Recovered/Resolved]
  - Meningitis aseptic [Recovered/Resolved]
  - Headache [Recovered/Resolved]
  - Dizziness [Recovered/Resolved]
  - Headache [Recovered/Resolved]
  - Hypoaesthesia [Recovering/Resolving]
  - Hemiparesis [Recovered/Resolved]
  - Cyanosis [Recovered/Resolved]
  - Vomiting [Recovered/Resolved]
  - Visual impairment [Recovered/Resolved]
  - Thrombosis [Recovered/Resolved]
  - Papilloedema [Unknown]
  - Gait disturbance [Recovering/Resolving]
  - Pain [Unknown]
  - Paraesthesia [Unknown]
